FAERS Safety Report 9981000 (Version 2)
Quarter: 2014Q1

REPORT INFORMATION
  Report Type: Report from Study
  Country: JP (occurrence: JP)
  Receive Date: 20140307
  Receipt Date: 20140307
  Transmission Date: 20141002
  Serious: Yes (Death, Other)
  Sender: FDA-Public Use
  Company Number: JP-009507513-2011SP058418

PATIENT
  Age: 55 Year
  Sex: Male
  Weight: 67 kg

DRUGS (12)
  1. TEMOZOLOMIDE [Suspect]
     Indication: GLIOMATOSIS CEREBRI
     Dosage: 150 MG/M2, QD
     Route: 048
     Dates: start: 20070110, end: 20070114
  2. TEMOZOLOMIDE [Suspect]
     Dosage: 200 MG/M2 X 5 DAYS/28 DAYS, DAILY DOSE UNKNOWN
     Route: 048
     Dates: start: 20070209, end: 20071023
  3. MAGNESIUM OXIDE [Concomitant]
     Indication: PROPHYLAXIS
     Dosage: DAILY DOSE UNKNOWN, FORMULATION: POR
     Route: 048
     Dates: start: 20070319, end: 20071015
  4. NAVOBAN [Concomitant]
     Indication: PROPHYLAXIS
     Dosage: DAILY DOSE UNKNOWN
     Route: 048
     Dates: start: 20070110, end: 20071120
  5. LAXOBERON [Concomitant]
     Indication: PROPHYLAXIS
     Dosage: DAILY DOSE UNKNOWN, FORMULATION: POR
     Route: 048
     Dates: start: 20070112, end: 20070130
  6. PRIMPERAN [Concomitant]
     Indication: PROPHYLAXIS
     Dosage: DAILY DOSE UNKNOWN, FORMULATIO: POR
     Route: 048
     Dates: start: 20070115, end: 20070925
  7. DECADRON (DEXAMETHASONE ACETATE) [Concomitant]
     Indication: PROPHYLAXIS
     Dosage: DAILY DOSE UNKNOWN
     Route: 048
     Dates: start: 20070115, end: 20070313
  8. GASMOTIN [Concomitant]
     Dosage: DAILY DOSE UNKNOWN; FORMULATION:POR
     Route: 048
     Dates: end: 20070501
  9. NAUZELIN [Concomitant]
     Dosage: DAILY DOSE UNKNOWN, FORMULATION: POR
     Route: 048
     Dates: end: 20070308
  10. PHENYTOIN [Concomitant]
     Dosage: DAILY DOSE UNKNOWN
     Route: 048
     Dates: end: 20071113
  11. DEPAS [Concomitant]
     Dosage: DAILY DOSE UNKNOWN, FORMULATION: POR
     Route: 048
     Dates: end: 20070905
  12. TAURINE [Concomitant]
     Dosage: DAILY DOSE UNKNOWN:FORMULATION: POR
     Route: 048
     Dates: end: 20070311

REACTIONS (10)
  - Disease progression [Fatal]
  - Bone marrow failure [Recovering/Resolving]
  - Eosinophil count increased [Recovered/Resolved]
  - Basophil count increased [Recovered/Resolved]
  - Monocyte count increased [Not Recovered/Not Resolved]
  - Nausea [Recovering/Resolving]
  - Malaise [Recovering/Resolving]
  - Constipation [Recovered/Resolved]
  - White blood cell count decreased [Recovered/Resolved]
  - Hyperglycaemia [Recovered/Resolved]
